FAERS Safety Report 19550195 (Version 1)
Quarter: 2021Q3

REPORT INFORMATION
  Report Type: Spontaneous
  Country: US (occurrence: US)
  Receive Date: 20210715
  Receipt Date: 20210715
  Transmission Date: 20211014
  Serious: No
  Sender: FDA-Public Use
  Company Number: US-ASTRAZENECA-2021A581945

PATIENT
  Sex: Female
  Weight: 52.2 kg

DRUGS (4)
  1. SYMBICORT [Concomitant]
     Active Substance: BUDESONIDE\FORMOTEROL FUMARATE DIHYDRATE
     Indication: CHRONIC OBSTRUCTIVE PULMONARY DISEASE
     Route: 055
  2. BREZTRI AEROSPHERE [Suspect]
     Active Substance: BUDESONIDE\FORMOTEROL\GLYCOPYRRONIUM
     Indication: CHRONIC OBSTRUCTIVE PULMONARY DISEASE
     Dosage: BREZTRI AEROSPHERE 160MCG/ 9MCG/ 4.8 MCG TWO PUFFS BID
     Route: 055
     Dates: start: 202106
  3. SYMBICORT [Concomitant]
     Active Substance: BUDESONIDE\FORMOTEROL FUMARATE DIHYDRATE
     Indication: ASTHMA
     Route: 055
  4. BREZTRI AEROSPHERE [Suspect]
     Active Substance: BUDESONIDE\FORMOTEROL\GLYCOPYRRONIUM
     Indication: ASTHMA
     Dosage: BREZTRI AEROSPHERE 160MCG/ 9MCG/ 4.8 MCG TWO PUFFS BID
     Route: 055
     Dates: start: 202106

REACTIONS (5)
  - Wrong technique in product usage process [Not Recovered/Not Resolved]
  - Incorrect dose administered by device [Unknown]
  - Wrong technique in device usage process [Not Recovered/Not Resolved]
  - Device ineffective [Unknown]
  - Oxygen saturation decreased [Recovering/Resolving]
